FAERS Safety Report 19574458 (Version 1)
Quarter: 2021Q3

REPORT INFORMATION
  Report Type: Report from Study
  Country: None (occurrence: AR)
  Receive Date: 20210719
  Receipt Date: 20210719
  Transmission Date: 20211014
  Serious: Yes (Hospitalization, Other)
  Sender: FDA-Public Use
  Company Number: AR-ABBVIE-21K-007-3957674-00

PATIENT
  Age: 49 Year
  Sex: Male

DRUGS (1)
  1. HUMIRA [Suspect]
     Active Substance: ADALIMUMAB
     Indication: PSORIATIC ARTHROPATHY
     Route: 058
     Dates: start: 20120213, end: 20210422

REACTIONS (4)
  - Abdominal pain [Recovering/Resolving]
  - Psoriatic arthropathy [Recovering/Resolving]
  - Cardiomegaly [Unknown]
  - Inflammation [Unknown]

NARRATIVE: CASE EVENT DATE: 20210614
